FAERS Safety Report 6479258-3 (Version None)
Quarter: 2009Q4

REPORT INFORMATION
  Report Type: 
  Country: None (occurrence: None)
  Receive Date: 20091207
  Receipt Date: 20090324
  Transmission Date: 20100525
  Serious: No
  Sender: FDA-Public Use
  Company Number: US-AMGEN-KDL334790

PATIENT
  Sex: Female
  Weight: 90.8 kg

DRUGS (10)
  1. ENBREL [Suspect]
     Indication: PSORIATIC ARTHROPATHY
     Route: 058
     Dates: start: 20090204
  2. ENBREL [Suspect]
     Indication: PSORIASIS
  3. CYMBALTA [Concomitant]
     Dates: start: 20070101
  4. KLONOPIN [Concomitant]
     Dates: start: 20070101
  5. LAMICTAL [Concomitant]
     Dates: start: 20070101
  6. ZIAC [Concomitant]
     Dates: start: 20070101
  7. NEXIUM [Concomitant]
     Dates: start: 20080101
  8. LOESTRIN 1.5/30 [Concomitant]
     Dates: start: 19980101
  9. PILOCARPINE HYDROCHLORIDE [Concomitant]
     Dates: start: 20080101
  10. CRESTOR [Concomitant]
     Dates: start: 20070101

REACTIONS (4)
  - INJECTION SITE ERYTHEMA [None]
  - INJECTION SITE HAEMATOMA [None]
  - INJECTION SITE SWELLING [None]
  - INJECTION SITE WARMTH [None]
